FAERS Safety Report 16996263 (Version 6)
Quarter: 2020Q2

REPORT INFORMATION
  Report Type: Report from Study
  Country: US (occurrence: US)
  Receive Date: 20191105
  Receipt Date: 20200617
  Transmission Date: 20200713
  Serious: Yes (Death, Hospitalization)
  Sender: FDA-Public Use
  Company Number: US-ACTELION-A-US2019-197751

PATIENT
  Sex: Female
  Weight: 163.27 kg

DRUGS (5)
  1. WARFARIN [Concomitant]
     Active Substance: WARFARIN
  2. OPSUMIT [Suspect]
     Active Substance: MACITENTAN
     Indication: PULMONARY ARTERIAL HYPERTENSION
     Dosage: 10 MG, QD
     Route: 048
  3. SILDENAFIL. [Concomitant]
     Active Substance: SILDENAFIL
  4. ADEMPAS [Suspect]
     Active Substance: RIOCIGUAT
     Indication: PRODUCT USED FOR UNKNOWN INDICATION
     Route: 065
  5. OXYGEN. [Concomitant]
     Active Substance: OXYGEN
     Dosage: 4 TO 5 L/M

REACTIONS (11)
  - Hospitalisation [Unknown]
  - International normalised ratio increased [Unknown]
  - Headache [Unknown]
  - Product dose omission [Unknown]
  - Renal function test abnormal [Unknown]
  - Heart rate increased [Unknown]
  - Malaise [Unknown]
  - Blood potassium abnormal [Unknown]
  - Disease complication [Fatal]
  - Dyspnoea [Unknown]
  - Pulmonary arterial hypertension [Fatal]
